FAERS Safety Report 4384360-6 (Version None)
Quarter: 2004Q2

REPORT INFORMATION
  Report Type: 
  Country: None (occurrence: None)
  Receive Date: 20040621
  Receipt Date: 20040614
  Transmission Date: 20050107
  Serious: Yes (Life-Threatening)
  Sender: FDA-Public Use
  Company Number: 2004219146JP

PATIENT
  Age: 30 Year
  Sex: Female

DRUGS (1)
  1. HALCION [Suspect]
     Dosage: 25 MG, QD, ORAL
     Route: 048
     Dates: start: 20040614, end: 20040614

REACTIONS (3)
  - INTENTIONAL OVERDOSE [None]
  - LOSS OF CONSCIOUSNESS [None]
  - SUICIDE ATTEMPT [None]
